FAERS Safety Report 6055514-8 (Version None)
Quarter: 2009Q1

REPORT INFORMATION
  Report Type: 
  Country: None (occurrence: None)
  Receive Date: 20090128
  Receipt Date: 20090116
  Transmission Date: 20090719
  Serious: Yes (Death, Hospitalization)
  Sender: FDA-Public Use
  Company Number: A0764681A

PATIENT
  Age: 63 Year
  Sex: Female
  Weight: 88.2 kg

DRUGS (3)
  1. AVANDARYL [Suspect]
     Route: 048
     Dates: start: 20061130, end: 20061230
  2. METFORMIN HCL [Concomitant]
  3. LANTUS [Concomitant]

REACTIONS (2)
  - CARDIAC ARREST [None]
  - MYOCARDIAL INFARCTION [None]
